FAERS Safety Report 8173849-X (Version None)
Quarter: 2012Q1

REPORT INFORMATION
  Report Type: 
  Country: None (occurrence: None)
  Receive Date: 20120229
  Receipt Date: 20120221
  Transmission Date: 20120608
  Serious: Yes (Other)
  Sender: FDA-Public Use
  Company Number: US-ELI_LILLY_AND_COMPANY-US201202006645

PATIENT
  Age: 85 Year
  Sex: Female

DRUGS (14)
  1. FORTEO [Suspect]
     Indication: OSTEOPOROSIS
     Dosage: 20 UG, QD
     Dates: start: 20110501
  2. NOVOLOG [Concomitant]
  3. GABAPENTIN [Concomitant]
     Dosage: UNK, EACH EVENING
  4. CALCITRIOL [Concomitant]
  5. AMLODIPINE [Concomitant]
  6. ARANESP [Concomitant]
     Indication: RENAL IMPAIRMENT
  7. DOXYCIN [Concomitant]
  8. CARVEDILOL [Concomitant]
  9. DIOVAN [Concomitant]
  10. FUROSEMIDE [Concomitant]
  11. ALPRAZOLAM [Concomitant]
  12. CRESTOR [Concomitant]
  13. FORTEO [Suspect]
     Dosage: 20 UG, QD
  14. RENVELA [Concomitant]

REACTIONS (2)
  - NEOPLASM SKIN [None]
  - BRONCHITIS [None]
